FAERS Safety Report 16257172 (Version 1)
Quarter: 2019Q2

REPORT INFORMATION
  Report Type: Spontaneous
  Country: US (occurrence: US)
  Receive Date: 20190430
  Receipt Date: 20190430
  Transmission Date: 20190711
  Serious: No
  Sender: FDA-Public Use
  Company Number: US-EMD SERONO-9087423

PATIENT
  Sex: Female

DRUGS (2)
  1. REBIF [Suspect]
     Active Substance: INTERFERON BETA-1A
     Indication: MULTIPLE SCLEROSIS
     Route: 058
     Dates: start: 20180618
  2. REBIF [Suspect]
     Active Substance: INTERFERON BETA-1A
     Route: 058

REACTIONS (4)
  - Influenza like illness [Recovering/Resolving]
  - Hot flush [Unknown]
  - Feeling hot [Unknown]
  - Hyperhidrosis [Unknown]
